FAERS Safety Report 5017552-3 (Version None)
Quarter: 2006Q2

REPORT INFORMATION
  Report Type: 
  Country: None (occurrence: None)
  Receive Date: 20060601
  Receipt Date: 20060601
  Transmission Date: 20061013
  Serious: Yes (Hospitalization, Other)
  Sender: FDA-Public Use
  Company Number: None

PATIENT
  Age: 77 Year
  Sex: Male
  Weight: 76.6579 kg

DRUGS (1)
  1. AVASTIN [Suspect]
     Indication: RENAL CANCER METASTATIC
     Dosage: 500 MG IV EVERY 14 DAYS X 6 IV
     Route: 042
     Dates: start: 20051107, end: 20060214

REACTIONS (6)
  - DUODENAL ULCER [None]
  - FAECES DISCOLOURED [None]
  - GASTRIC ULCER [None]
  - GASTRITIS EROSIVE [None]
  - HAEMOGLOBIN DECREASED [None]
  - THROMBOSIS [None]
